FAERS Safety Report 7713367-3 (Version None)
Quarter: 2011Q3

REPORT INFORMATION
  Report Type: 
  Country: None (occurrence: None)
  Receive Date: 20110826
  Receipt Date: 20110815
  Transmission Date: 20111222
  Serious: Yes (Hospitalization)
  Sender: FDA-Public Use
  Company Number: US-BAYER-2010-006376

PATIENT
  Age: 33 Year
  Sex: Female
  Weight: 94.331 kg

DRUGS (10)
  1. DROSPIRENONE AND ETHINYL ESTRADIOL [Suspect]
     Indication: CONTRACEPTION
     Dosage: UNK
     Route: 048
     Dates: start: 20080501, end: 20091003
  2. CITALOPRAM [Concomitant]
     Dosage: UNK
     Dates: start: 20080201
  3. TRIAMTERENE AND HYDROCHLOROTHIAZIDE [Concomitant]
     Indication: HYPERTENSION
     Dosage: UNK
     Route: 048
     Dates: start: 20080601
  4. PHENERGAN HCL [Concomitant]
     Dosage: UNK
     Dates: start: 20081219
  5. PERCOCET [Concomitant]
     Dosage: UNK
     Dates: start: 20081219
  6. DROSPIRENONE AND ETHINYL ESTRADIOL [Suspect]
  7. AMLODIPINE [Concomitant]
     Indication: HYPERTENSION
     Dosage: 5 MG, QD
     Dates: start: 20081001
  8. ROLAIDS [Concomitant]
  9. TYLENOL-500 [Concomitant]
  10. NORVASC [Concomitant]

REACTIONS (5)
  - CHOLECYSTITIS CHRONIC [None]
  - INJURY [None]
  - PAIN [None]
  - GALLBLADDER DISORDER [None]
  - CHOLELITHIASIS [None]
